FAERS Safety Report 5766317-3 (Version None)
Quarter: 2008Q2

REPORT INFORMATION
  Report Type: 
  Country: None (occurrence: None)
  Receive Date: 20080605
  Receipt Date: 20080521
  Transmission Date: 20081010
  Serious: Yes (Other)
  Sender: FDA-Public Use
  Company Number: 2008US001402

PATIENT
  Age: 27 Year
  Sex: Female

DRUGS (1)
  1. AMBISOME [Suspect]
     Indication: FUNGAL INFECTION
     Dosage: 300 MG, UID/QD, IV NOS
     Route: 042
     Dates: start: 20080126

REACTIONS (1)
  - RENAL TUBULAR ACIDOSIS [None]
